FAERS Safety Report 16383544 (Version 1)
Quarter: 2019Q2

REPORT INFORMATION
  Report Type: Spontaneous
  Country: CN (occurrence: CN)
  Receive Date: 20190603
  Receipt Date: 20190603
  Transmission Date: 20190711
  Serious: Yes (Other)
  Sender: FDA-Public Use
  Company Number: CN-PFIZER INC-2019230121

PATIENT
  Age: 55 Year
  Sex: Female

DRUGS (1)
  1. CELEBREX [Suspect]
     Active Substance: CELECOXIB
     Indication: PERIARTHRITIS
     Dosage: 200 MG, 2X/DAY
     Route: 048
     Dates: start: 20190502, end: 20190503

REACTIONS (5)
  - Pruritus [Recovering/Resolving]
  - Feeling cold [Recovering/Resolving]
  - Dermatitis allergic [Recovering/Resolving]
  - Rash [Recovering/Resolving]
  - Chills [Recovering/Resolving]

NARRATIVE: CASE EVENT DATE: 20190502
